FAERS Safety Report 9830920 (Version 1)
Quarter: 2014Q1

REPORT INFORMATION
  Report Type: Spontaneous
  Country: CH (occurrence: CH)
  Receive Date: 20140120
  Receipt Date: 20140120
  Transmission Date: 20141002
  Serious: Yes (Hospitalization)
  Sender: FDA-Public Use
  Company Number: PHHY2014CH004156

PATIENT
  Age: 58 Year
  Sex: Male
  Weight: 60 kg

DRUGS (5)
  1. LEPONEX [Suspect]
     Indication: BIPOLAR I DISORDER
     Route: 048
  2. LEPONEX [Suspect]
     Dosage: 100 MG, BID
     Route: 048
     Dates: start: 20131108
  3. LEPONEX [Suspect]
     Dosage: 100 MG,
     Route: 048
     Dates: start: 20131109
  4. TEMESTA [Concomitant]
     Indication: BIPOLAR I DISORDER
     Dosage: 2.5 MG, UNK
     Route: 048
     Dates: start: 20131109
  5. NEXIUM//ESOMEPRAZOLE MAGNESIUM [Concomitant]
     Indication: ANTIPSYCHOTIC DRUG LEVEL
     Dosage: 40 MG, TID
     Route: 048
     Dates: start: 20131109

REACTIONS (1)
  - Coma [Recovered/Resolved]
